FAERS Safety Report 15059172 (Version 1)
Quarter: 2018Q2

REPORT INFORMATION
  Report Type: Spontaneous
  Country: US (occurrence: US)
  Receive Date: 20180605
  Receipt Date: 20180605
  Transmission Date: 20180711
  Serious: No
  Sender: FDA-Public Use
  Company Number: None

PATIENT
  Age: 68 Year
  Sex: Female

DRUGS (1)
  1. HUMIRA [Suspect]
     Active Substance: ADALIMUMAB
     Indication: PSORIASIS
     Dosage: 40MG/0.8ML; 2 PEN (80MG) ON DAY 1 THEN 1 PEN (40MG) ON; SQ?
     Route: 058
     Dates: start: 20180510

REACTIONS (7)
  - Fatigue [None]
  - Pruritus [None]
  - Diarrhoea [None]
  - Nausea [None]
  - Pain in extremity [None]
  - Irritability [None]
  - Peripheral swelling [None]

NARRATIVE: CASE EVENT DATE: 20180510
